FAERS Safety Report 18562683 (Version 2)
Quarter: 2020Q4

REPORT INFORMATION
  Report Type: Spontaneous
  Country: US (occurrence: US)
  Receive Date: 20201201
  Receipt Date: 20201203
  Transmission Date: 20210114
  Serious: No
  Sender: FDA-Public Use
  Company Number: US-SA-2020SA340740

PATIENT

DRUGS (1)
  1. ADMELOG [Suspect]
     Active Substance: INSULIN LISPRO
     Indication: TYPE 1 DIABETES MELLITUS
     Dosage: 200 ML
     Route: 065

REACTIONS (3)
  - Condition aggravated [Recovered/Resolved]
  - Suspected product quality issue [Recovered/Resolved]
  - Blood glucose abnormal [Recovered/Resolved]
